FAERS Safety Report 9735900 (Version 2)
Quarter: 2013Q4

REPORT INFORMATION
  Report Type: Spontaneous
  Country: US (occurrence: US)
  Receive Date: 20131206
  Receipt Date: 20131206
  Transmission Date: 20140711
  Serious: No
  Sender: FDA-Public Use
  Company Number: US-GILEAD-2009-0024092

PATIENT
  Sex: Female
  Weight: 68.95 kg

DRUGS (19)
  1. LETAIRIS [Suspect]
     Indication: PULMONARY ARTERIAL HYPERTENSION
     Route: 048
     Dates: start: 20080619
  2. OXYGEN [Concomitant]
  3. ADCIRCA [Concomitant]
  4. LASIX [Concomitant]
  5. VERAPAMIL [Concomitant]
  6. SPIRONOLACTONE [Concomitant]
  7. PENICILLIN [Concomitant]
  8. ACYCLOVIR [Concomitant]
  9. VITAMIN C [Concomitant]
  10. ATENOLOL [Concomitant]
  11. LASIX [Concomitant]
  12. TYLENOL [Concomitant]
  13. MECLIZINE [Concomitant]
  14. EXCEDRIN [Concomitant]
  15. YAZ 28 [Concomitant]
  16. ZINC OXIDE [Concomitant]
  17. MULTIVITAMINS [Concomitant]
  18. POTASSIUM CHLORIDE [Concomitant]
  19. ASPIRIN [Concomitant]

REACTIONS (1)
  - Ocular hyperaemia [Unknown]
